FAERS Safety Report 14213265 (Version 8)
Quarter: 2019Q4

REPORT INFORMATION
  Report Type: Spontaneous
  Country: US (occurrence: US)
  Receive Date: 20171122
  Receipt Date: 20191031
  Transmission Date: 20200122
  Serious: Yes (Other)
  Sender: FDA-Public Use
  Company Number: US-PFIZER INC-2017496723

PATIENT
  Age: 55 Year
  Sex: Female

DRUGS (6)
  1. BETAMETHASONE ACETATE/BETAMETHASONE SODIUM PHOSPHATE [Suspect]
     Active Substance: BETAMETHASONE ACETATE\BETAMETHASONE SODIUM PHOSPHATE
     Indication: NEUROMA
     Dosage: 0.5 CC
     Dates: start: 20170922, end: 20170922
  2. PREMARIN [Concomitant]
     Active Substance: ESTROGENS, CONJUGATED
     Dosage: UNK
  3. LIDOCAINE HCL [Suspect]
     Active Substance: LIDOCAINE HYDROCHLORIDE
     Indication: NEUROMA
     Dosage: 1 CC
     Dates: start: 20170922
  4. MEPIVACAINE HCL [Suspect]
     Active Substance: MEPIVACAINE HYDROCHLORIDE
     Dosage: UNK
  5. CORTISONE ACETATE. [Suspect]
     Active Substance: CORTISONE ACETATE
     Dosage: UNK
  6. LINZESS [Concomitant]
     Active Substance: LINACLOTIDE

REACTIONS (3)
  - Localised infection [Unknown]
  - Mycobacterium chelonae infection [Unknown]
  - Off label use [Unknown]

NARRATIVE: CASE EVENT DATE: 20170922
